FAERS Safety Report 7701151-6 (Version None)
Quarter: 2011Q3

REPORT INFORMATION
  Report Type: 
  Country: None (occurrence: None)
  Receive Date: 20110817
  Receipt Date: 20110804
  Transmission Date: 20111222
  Serious: Yes (Other)
  Sender: FDA-Public Use
  Company Number: TPA2011A03244

PATIENT
  Age: 73 Year
  Sex: Female
  Weight: 76.2043 kg

DRUGS (2)
  1. ACTOS [Suspect]
     Indication: DIABETES MELLITUS INADEQUATE CONTROL
     Dosage: 30 MG, 1 IN 1 D, PER ORAL
     Route: 048
     Dates: start: 20070419, end: 20070813
  2. ACTOPLUS MET [Suspect]
     Indication: DIABETES MELLITUS INADEQUATE CONTROL
     Dosage: 15 MG/ 500 MG BID PER ORAL
     Route: 048
     Dates: start: 20091009, end: 20110527

REACTIONS (1)
  - BLADDER CANCER [None]
